FAERS Safety Report 4714999-7 (Version None)
Quarter: 2005Q2

REPORT INFORMATION
  Report Type: 
  Country: None (occurrence: None)
  Receive Date: 20050630
  Receipt Date: 20050510
  Transmission Date: 20051028
  Serious: Yes (Hospitalization)
  Sender: FDA-Public Use
  Company Number: 212439

PATIENT
  Age: 52 Year
  Sex: Male
  Weight: 78.5 kg

DRUGS (3)
  1. AVASTIN [Suspect]
     Indication: COLON CANCER METASTATIC
     Dosage: 600 MG, Q3W, INTRAVENOUS
     Route: 042
     Dates: start: 20050103, end: 20050217
  2. XELODA [Concomitant]
  3. OXALIPLATIN [Concomitant]

REACTIONS (3)
  - DEEP VEIN THROMBOSIS [None]
  - ILIAC VEIN THROMBOSIS [None]
  - PULMONARY EMBOLISM [None]
